FAERS Safety Report 23422351 (Version 3)
Quarter: 2025Q4

REPORT INFORMATION
  Report Type: Report from Study
  Country: EU (occurrence: None)
  Receive Date: 20240119
  Receipt Date: 20251219
  Transmission Date: 20260118
  Serious: Yes (Hospitalization)
  Sender: CHIESI
  Company Number: EU-CHIESI-2023CHF01302

PATIENT
  Age: 6 Year
  Sex: Male
  Weight: 30 kg

DRUGS (1)
  1. LAMZEDE [Suspect]
     Active Substance: VELMANASE ALFA-TYCV
     Indication: Alpha-mannosidosis
     Dosage: 1 MILLIGRAM/KILOGRAM, QW
     Dates: start: 20201118, end: 20230303

REACTIONS (3)
  - Nasal obstruction [Recovered/Resolved]
  - Cough [Recovered/Resolved]
  - Vomiting [Recovered/Resolved]

NARRATIVE: CASE EVENT DATE: 20230302
